FAERS Safety Report 10169699 (Version 1)
Quarter: 2014Q2

REPORT INFORMATION
  Report Type: Spontaneous
  Country: FR (occurrence: FR)
  Receive Date: 20140513
  Receipt Date: 20140513
  Transmission Date: 20141212
  Serious: Yes (Other)
  Sender: FDA-Public Use
  Company Number: FR-PFIZER INC-2014125919

PATIENT
  Age: 53 Year
  Sex: Female

DRUGS (17)
  1. TRIFLUCAN [Suspect]
     Dosage: 800 MG, DAILY
     Dates: start: 20140329
  2. PROGRAF [Interacting]
     Indication: IMMUNOSUPPRESSION
     Dosage: UNK
     Dates: end: 20140401
  3. AMLOR [Concomitant]
     Dosage: 10 MG, UNK
  4. ARANESP [Concomitant]
     Dosage: 50 UG, UNK
  5. COUMADINE [Concomitant]
     Dosage: 2 MG, UNK
  6. LEVOTHYROX [Concomitant]
     Dosage: 75 UG, UNK
  7. MIMPARA [Concomitant]
     Dosage: 60 MG, UNK
  8. MONICOR L.P. [Concomitant]
     Dosage: 40 MG, UNK
  9. TRIATEC [Concomitant]
     Dosage: 5 MG, UNK
  10. UVEDOSE [Concomitant]
  11. LASILIX [Concomitant]
     Dosage: 40 MG, UNK
  12. BISOPROLOL FUMARATE [Concomitant]
  13. CELLCEPT [Concomitant]
     Dosage: 500 MG, UNK
  14. CRESTOR [Concomitant]
     Dosage: 10 MG, UNK
  15. AMBISOME [Concomitant]
     Indication: CRYPTOCOCCAL FUNGAEMIA
     Dosage: UNK
     Dates: start: 20140314, end: 20140329
  16. ANCOTIL [Concomitant]
     Indication: CRYPTOCOCCAL FUNGAEMIA
     Dosage: 500 MG, UNK
     Dates: start: 20140314, end: 20140329
  17. RIVOTRIL [Concomitant]
     Dosage: 2 INJECTIONS OF 0.5 MG WITH 5 MINUTES OF INTERVAL
     Dates: start: 20140326

REACTIONS (3)
  - Drug interaction [Not Recovered/Not Resolved]
  - Renal failure acute [Not Recovered/Not Resolved]
  - Acute pulmonary oedema [Not Recovered/Not Resolved]
